FAERS Safety Report 9077608 (Version 1)
Quarter: 2013Q1

REPORT INFORMATION
  Report Type: Report from Study
  Country: US (occurrence: US)
  Receive Date: 20130130
  Receipt Date: 20130130
  Transmission Date: 20140127
  Serious: No
  Sender: FDA-Public Use
  Company Number: US-ABBOTT-12P-163-0973877-00

PATIENT
  Age: 58 Year
  Sex: 0
  Weight: 94.43 kg

DRUGS (19)
  1. HUMIRA [Suspect]
     Dates: start: 2011, end: 2011
  2. HUMIRA [Suspect]
     Dates: start: 2012
  3. MORPHINE [Concomitant]
     Indication: PAIN
  4. METHADONE [Concomitant]
     Indication: PAIN
  5. METHOTREXATE [Concomitant]
     Indication: PSORIATIC ARTHROPATHY
  6. BACLOFEN [Concomitant]
     Indication: PRODUCT USED FOR UNKNOWN INDICATION
  7. CYMBALTA [Concomitant]
     Indication: PRODUCT USED FOR UNKNOWN INDICATION
  8. FUROSEMIDE [Concomitant]
     Indication: FLUID RETENTION
  9. PREMARIN [Concomitant]
     Indication: HORMONE REPLACEMENT THERAPY
  10. GABAPENTIN [Concomitant]
     Indication: PAIN IN EXTREMITY
  11. IBUPROFEN [Concomitant]
     Indication: PAIN
  12. OXYBUTANE CHLORIDE [Concomitant]
     Indication: URINARY INCONTINENCE
  13. RANITIDINE [Concomitant]
     Indication: PRODUCT USED FOR UNKNOWN INDICATION
  14. SALSALATE [Concomitant]
     Indication: PRODUCT USED FOR UNKNOWN INDICATION
  15. FLAX SEED OIL [Concomitant]
     Indication: ARTHRITIS
  16. FOLIC ACID [Concomitant]
     Indication: VITAMIN SUPPLEMENTATION
  17. MELATONIN [Concomitant]
     Indication: SLEEP DISORDER
  18. MULTIPLE VITAMINS [Concomitant]
     Indication: VITAMIN SUPPLEMENTATION
  19. VITAMIN C [Concomitant]
     Indication: VITAMIN SUPPLEMENTATION

REACTIONS (9)
  - Fall [Recovered/Resolved]
  - Soft tissue injury [Recovering/Resolving]
  - Head injury [Recovered/Resolved]
  - Contusion [Recovering/Resolving]
  - Loss of consciousness [Recovered/Resolved]
  - Face injury [Recovering/Resolving]
  - Contusion [Recovered/Resolved]
  - Contusion [Recovered/Resolved]
  - Dehydration [Recovering/Resolving]
